FAERS Safety Report 8442023-1 (Version None)
Quarter: 2012Q2

REPORT INFORMATION
  Report Type: 
  Country: None (occurrence: None)
  Receive Date: 20120615
  Receipt Date: 20120606
  Transmission Date: 20120825
  Serious: Yes (Hospitalization)
  Sender: FDA-Public Use
  Company Number: DE-JNJFOC-20110403904

PATIENT
  Age: 45 Year
  Sex: Male
  Weight: 55 kg

DRUGS (4)
  1. CREON [Concomitant]
     Dosage: 40000 IE
     Dates: start: 20090927
  2. HUMIRA [Suspect]
     Indication: PRODUCT USED FOR UNKNOWN INDICATION
     Dates: start: 20090511
  3. REMICADE [Suspect]
     Indication: CROHN'S DISEASE
     Route: 042
     Dates: start: 20081201
  4. VITAMIN B-12 [Concomitant]
     Dates: start: 20090901

REACTIONS (2)
  - GASTRITIS [None]
  - CROHN'S DISEASE [None]
